FAERS Safety Report 15567343 (Version 1)
Quarter: 2018Q4

REPORT INFORMATION
  Report Type: Spontaneous
  Country: US (occurrence: US)
  Receive Date: 20181030
  Receipt Date: 20181030
  Transmission Date: 20190205
  Serious: Yes (Other)
  Sender: FDA-Public Use
  Company Number: US-TEVA-2018-US-966957

PATIENT
  Sex: Female

DRUGS (1)
  1. OCTREOTIDE TEVA [Suspect]
     Active Substance: OCTREOTIDE
     Route: 065

REACTIONS (3)
  - Tumour flare [Unknown]
  - Drug ineffective [Unknown]
  - Malaise [Unknown]
